FAERS Safety Report 13404149 (Version 1)
Quarter: 2017Q2

REPORT INFORMATION
  Report Type: Spontaneous
  Country: US (occurrence: US)
  Receive Date: 20170405
  Receipt Date: 20170405
  Transmission Date: 20170830
  Serious: Yes (Other)
  Sender: FDA-Public Use
  Company Number: US-THE MENTHOLATUM COMPANY-1065016

PATIENT
  Sex: Female

DRUGS (1)
  1. WELLPATCH CAPSAICIN PAIN RELIEF [Suspect]
     Active Substance: CAPSAICIN
     Route: 061

REACTIONS (1)
  - Chemical burn of skin [Unknown]
